FAERS Safety Report 21779462 (Version 1)
Quarter: 2022Q4

REPORT INFORMATION
  Report Type: Spontaneous
  Country: US (occurrence: US)
  Receive Date: 20221226
  Receipt Date: 20221226
  Transmission Date: 20230112
  Serious: No
  Sender: FDA-Public Use
  Company Number: US-BAYER-2022A174468

PATIENT
  Sex: Female

DRUGS (1)
  1. LOTRIMIN ULTRA ATHLETES FOOT [Suspect]
     Active Substance: BUTENAFINE HYDROCHLORIDE
     Indication: Prophylaxis
     Dosage: UNK UNK, BID
     Route: 061
     Dates: start: 20221214, end: 20221222

REACTIONS (1)
  - Drug ineffective [Recovering/Resolving]

NARRATIVE: CASE EVENT DATE: 20221215
